FAERS Safety Report 16089951 (Version 2)
Quarter: 2019Q2

REPORT INFORMATION
  Report Type: Spontaneous
  Country: JP (occurrence: JP)
  Receive Date: 20190319
  Receipt Date: 20190610
  Transmission Date: 20190711
  Serious: Yes (Hospitalization, Other)
  Sender: FDA-Public Use
  Company Number: JP-MYLANLABS-2019M1024572

PATIENT
  Age: 86 Year
  Sex: Male
  Weight: 50 kg

DRUGS (5)
  1. ZOVIRAX [Suspect]
     Active Substance: ACYCLOVIR
     Indication: HERPES ZOSTER
     Dosage: 700 MILLIGRAM, QID
     Route: 048
  2. ZOVIRAX [Suspect]
     Active Substance: ACYCLOVIR
     Dosage: 720 MILLIGRAM, QID FOR 2 DAYS
     Route: 048
     Dates: start: 20190223, end: 20190525
  3. BEPOTASTINE BESILATE [Concomitant]
     Active Substance: BEPOTASTINE BESILATE
     Dosage: UNK
     Dates: start: 20190223
  4. EPINASTINE HYDROCHLORIDE. [Concomitant]
     Active Substance: EPINASTINE HYDROCHLORIDE
     Dosage: UNK
     Dates: start: 20190223
  5. VALACYCLOVIR HYDROCHLORIDE. [Suspect]
     Active Substance: VALACYCLOVIR HYDROCHLORIDE
     Indication: HERPES ZOSTER
     Dosage: 1000 MILLIGRAM, TID FOR 2 DAYS
     Route: 048
     Dates: start: 20190301, end: 20190303

REACTIONS (12)
  - Wernicke^s encephalopathy [Recovering/Resolving]
  - Meningitis bacterial [Recovering/Resolving]
  - Diarrhoea [Recovering/Resolving]
  - Subdural haematoma [Unknown]
  - Altered state of consciousness [Recovering/Resolving]
  - Renal impairment [Recovered/Resolved]
  - Anaemia macrocytic [Recovering/Resolving]
  - Product use issue [Unknown]
  - Clostridium difficile infection [Recovered/Resolved]
  - Refeeding syndrome [Recovered/Resolved]
  - Acute kidney injury [Recovered/Resolved]
  - Toxic encephalopathy [Recovering/Resolving]

NARRATIVE: CASE EVENT DATE: 2019
